FAERS Safety Report 14381083 (Version 1)
Quarter: 2018Q1

REPORT INFORMATION
  Report Type: Spontaneous
  Country: CA (occurrence: CA)
  Receive Date: 20180112
  Receipt Date: 20180112
  Transmission Date: 20180509
  Serious: Yes (Death)
  Sender: FDA-Public Use
  Company Number: CA-PFIZER INC-2017158855

PATIENT
  Age: 78 Year
  Sex: Female

DRUGS (6)
  1. FASLODEX [Concomitant]
     Active Substance: FULVESTRANT
     Dosage: UNK
  2. IBRANCE [Suspect]
     Active Substance: PALBOCICLIB
     Indication: BREAST CANCER METASTATIC
     Dosage: 125 MG, CYCLIC, TAKEN 21 DAYS ON, 7 DAYS OFF
     Route: 048
     Dates: start: 20170413
  3. CLASTEON [Concomitant]
     Dosage: 400 MG, UNK
  4. IBRANCE [Suspect]
     Active Substance: PALBOCICLIB
     Dosage: 75 MG, CYCLIC (FOR 3 WEEKS, 1 WEEK OFF)
     Route: 048
     Dates: start: 201708, end: 20170906
  5. TELMISARTAN. [Concomitant]
     Active Substance: TELMISARTAN
     Dosage: UNK
  6. IBRANCE [Suspect]
     Active Substance: PALBOCICLIB
     Dosage: 100 MG, CYCLIC (3 WEEKS ON AND 1 WEEK OFF)
     Route: 048
     Dates: start: 201706

REACTIONS (3)
  - Product use in unapproved indication [Unknown]
  - Platelet count decreased [Unknown]
  - Death [Fatal]

NARRATIVE: CASE EVENT DATE: 20170413
